FAERS Safety Report 9375184 (Version 2)
Quarter: 2013Q3

REPORT INFORMATION
  Report Type: Spontaneous
  Country: US (occurrence: US)
  Receive Date: 20130628
  Receipt Date: 20130903
  Transmission Date: 20140515
  Serious: Yes (Other)
  Sender: FDA-Public Use
  Company Number: US-B.I. PHARMACEUTICALS,INC./RIDGEFIELD-2013-BI-17974BP

PATIENT
  Age: 76 Year
  Sex: Male
  Weight: 94.8 kg

DRUGS (20)
  1. SPIRIVA [Suspect]
     Indication: CHRONIC OBSTRUCTIVE PULMONARY DISEASE
     Dosage: 18 MCG
     Route: 055
     Dates: start: 20130522
  2. COMBIVENT [Suspect]
     Indication: CHRONIC OBSTRUCTIVE PULMONARY DISEASE
     Dosage: STRENGTH: 18 MCG / 103 MCG; DAILY DOSE: 144 MCG/824 MCG
     Route: 055
     Dates: start: 1996, end: 20130522
  3. PREDNISONE [Concomitant]
     Indication: ASTHMA
     Dosage: 5 MG
     Route: 048
  4. PROVENTIL [Concomitant]
     Indication: CHRONIC OBSTRUCTIVE PULMONARY DISEASE
     Route: 055
  5. ASPIRIN [Concomitant]
     Indication: CORONARY ARTERY DISEASE
     Dates: start: 2012
  6. AZITHROMYCIN [Concomitant]
     Indication: BRONCHITIS
  7. ATORVASTATIN [Concomitant]
     Indication: HYPERLIPIDAEMIA
  8. BUDESONIDE FORMOTOOL [Concomitant]
     Indication: CHRONIC OBSTRUCTIVE PULMONARY DISEASE
  9. CLOPIDOGREL [Concomitant]
     Indication: CORONARY ARTERY DISEASE
  10. DOCUSATE SODIUM [Concomitant]
  11. GABAPENTIN [Concomitant]
  12. LISINOPRIL [Concomitant]
  13. METOPROLOL [Concomitant]
  14. MONTELUKAST [Concomitant]
  15. NIACIN [Concomitant]
  16. PANTOPRAZOLE [Concomitant]
  17. THEOPHYLLINE [Concomitant]
  18. ZOLPIDEM [Concomitant]
  19. FLUNISOLIDE NOSE SPRAY [Concomitant]
     Dosage: FORMULATION: NOSE SPRAY
  20. NIOTROGLYCIN [Concomitant]

REACTIONS (5)
  - Urinary tract obstruction [Not Recovered/Not Resolved]
  - Urticaria [Not Recovered/Not Resolved]
  - Dysuria [Not Recovered/Not Resolved]
  - Pain [Not Recovered/Not Resolved]
  - Herpes zoster [Unknown]
